FAERS Safety Report 16228539 (Version 1)
Quarter: 2019Q2

REPORT INFORMATION
  Report Type: Spontaneous
  Country: US (occurrence: US)
  Receive Date: 20190422
  Receipt Date: 20190422
  Transmission Date: 20190711
  Serious: Yes (Life-Threatening)
  Sender: FDA-Public Use
  Company Number: None

PATIENT
  Age: 35 Year
  Sex: Female
  Weight: 117 kg

DRUGS (8)
  1. ISAVUCONAZONIUM [Suspect]
     Active Substance: ISAVUCONAZONIUM
     Indication: ASPERGILLUS INFECTION
     Route: 040
     Dates: start: 20190216, end: 20190227
  2. MEROPENEM/VABORBACTAM [Concomitant]
  3. PANTOPRAZOLE [Concomitant]
     Active Substance: PANTOPRAZOLE
  4. AMIODARONE [Concomitant]
     Active Substance: AMIODARONE
  5. DIPHENHYDRAMINE. [Concomitant]
     Active Substance: DIPHENHYDRAMINE
  6. ASCORBIC ACID. [Concomitant]
     Active Substance: ASCORBIC ACID
  7. TACROLIMUS. [Concomitant]
     Active Substance: TACROLIMUS
  8. HYDROCORTISONE. [Concomitant]
     Active Substance: HYDROCORTISONE

REACTIONS (5)
  - Pulseless electrical activity [None]
  - Confusional state [None]
  - Cardiac arrest [None]
  - Respiratory depression [None]
  - Aphasia [None]

NARRATIVE: CASE EVENT DATE: 20190227
